FAERS Safety Report 17740318 (Version 1)
Quarter: 2020Q2

REPORT INFORMATION
  Report Type: Spontaneous
  Country: US (occurrence: US)
  Receive Date: 20200504
  Receipt Date: 20200504
  Transmission Date: 20200714
  Serious: No
  Sender: FDA-Public Use
  Company Number: US-PFIZER INC-2020177310

PATIENT
  Age: 59 Year
  Sex: Female
  Weight: 104.31 kg

DRUGS (18)
  1. GLYBURIDE. [Concomitant]
     Active Substance: GLYBURIDE
  2. FERRO [IRON] [Concomitant]
  3. DURAGESIC [Concomitant]
     Active Substance: FENTANYL
  4. CLARITIN [Concomitant]
     Active Substance: LORATADINE
  5. LYRICA [Concomitant]
     Active Substance: PREGABALIN
  6. METOPROLOL TARTRATE. [Concomitant]
     Active Substance: METOPROLOL TARTRATE
  7. MECLIZINE HCL [Concomitant]
     Active Substance: MECLIZINE HYDROCHLORIDE
  8. MAGNESIUM [Concomitant]
     Active Substance: MAGNESIUM
  9. HUMALOG [Concomitant]
     Active Substance: INSULIN LISPRO
  10. LEVEMIR [Concomitant]
     Active Substance: INSULIN DETEMIR
  11. NEXIUM [Concomitant]
     Active Substance: ESOMEPRAZOLE MAGNESIUM
  12. METFORMIN HCL [Concomitant]
     Active Substance: METFORMIN HYDROCHLORIDE
  13. FUROSEMIDE. [Concomitant]
     Active Substance: FUROSEMIDE
  14. XELJANZ XR [Suspect]
     Active Substance: TOFACITINIB CITRATE
     Indication: RHEUMATOID ARTHRITIS
     Dosage: 11 MG, DAILY
     Route: 048
  15. PREDNISONE. [Concomitant]
     Active Substance: PREDNISONE
  16. ZENPEP [Concomitant]
     Active Substance: PANCRELIPASE AMYLASE\PANCRELIPASE LIPASE\PANCRELIPASE PROTEASE
  17. METHADONE HCL [Concomitant]
     Active Substance: METHADONE HYDROCHLORIDE
  18. AMLODIPINE BESYLATE. [Concomitant]
     Active Substance: AMLODIPINE BESYLATE

REACTIONS (1)
  - Drug ineffective [Unknown]
